FAERS Safety Report 8544713-9 (Version None)
Quarter: 2012Q3

REPORT INFORMATION
  Report Type: 
  Country: None (occurrence: None)
  Receive Date: 20120727
  Receipt Date: 20120717
  Transmission Date: 20120928
  Serious: Yes (Hospitalization)
  Sender: FDA-Public Use
  Company Number: CN-BRISTOL-MYERS SQUIBB COMPANY-16769606

PATIENT
  Age: 45 Year
  Sex: Male
  Weight: 70 kg

DRUGS (10)
  1. LEUCOVORIN CALCIUM [Suspect]
     Indication: COLORECTAL CANCER METASTATIC
     Dosage: INF, RECENT INF ON 26-JUN-2012,
     Route: 042
     Dates: start: 20120305, end: 20120627
  2. ADEMETIONINE [Concomitant]
     Dosage: ADEMETIONINE 1.4-BUTAEDISULFONATE
     Route: 042
     Dates: start: 20120703
  3. OXALIPLATIN [Suspect]
     Indication: COLORECTAL CANCER METASTATIC
     Dosage: INF, RECENT INF ON 26-JUN-2012
     Route: 042
     Dates: start: 20120305, end: 20120626
  4. PANTOPRAZOLE SODIUM [Concomitant]
     Indication: PROPHYLAXIS
     Route: 042
     Dates: start: 20120703
  5. HEPARIN [Concomitant]
     Indication: VENOUS THROMBOSIS
     Dosage: 1 DF = 3075 U
     Route: 058
     Dates: start: 20120629, end: 20120706
  6. CETUXIMAB [Suspect]
     Indication: COLORECTAL CANCER METASTATIC
     Dosage: INF, RECENT INF ON 3-JUL-2012
     Route: 042
     Dates: start: 20120305, end: 20120703
  7. ALPROSTADIL [Concomitant]
     Indication: PROPHYLAXIS
     Route: 042
     Dates: start: 20120703
  8. LENTINAN [Concomitant]
     Indication: IMMUNODEFICIENCY
     Route: 042
     Dates: start: 20120703
  9. FLUOROURACIL [Suspect]
     Indication: COLORECTAL CANCER METASTATIC
     Dosage: INF, 724 MG +2172 MG,RECENT INF ON 26-JUN-2012 11912 MG 5MAR-27JUN12
     Route: 042
     Dates: start: 20120305, end: 20120608
  10. CREATINE PHOSPHATE [Concomitant]
     Indication: PROPHYLAXIS
     Route: 042
     Dates: start: 20120703

REACTIONS (5)
  - CAROTID ARTERY THROMBOSIS [None]
  - SUBCLAVIAN VEIN THROMBOSIS [None]
  - DEEP VEIN THROMBOSIS [None]
  - JUGULAR VEIN THROMBOSIS [None]
  - AXILLARY VEIN THROMBOSIS [None]
